FAERS Safety Report 9014080 (Version 1)
Quarter: 2013Q1

REPORT INFORMATION
  Report Type: Spontaneous
  Country: US (occurrence: US)
  Receive Date: 20130115
  Receipt Date: 20130115
  Transmission Date: 20140127
  Serious: Yes (Other)
  Sender: FDA-Public Use
  Company Number: US-BAYER-2012-096409

PATIENT
  Age: 61 Year
  Sex: Female
  Weight: 68 kg

DRUGS (7)
  1. RID 1-2-3 SYSTEM [Suspect]
     Indication: LICE INFESTATION
     Dosage: UNK
     Dates: start: 20120907, end: 20120909
  2. RID [Suspect]
     Indication: LICE INFESTATION
     Dosage: UNK
     Dates: start: 20120907, end: 20120909
  3. HYDROCODONE [Concomitant]
  4. ROBAXIN [Concomitant]
  5. TOPROL [Concomitant]
  6. DIAZIDE [Concomitant]
  7. WELLBUTRIN [Concomitant]

REACTIONS (3)
  - Dyspnoea [Recovered/Resolved]
  - Cough [Recovered/Resolved]
  - Upper respiratory tract infection [Not Recovered/Not Resolved]
